FAERS Safety Report 6584056-6 (Version None)
Quarter: 2010Q1

REPORT INFORMATION
  Report Type: 
  Country: None (occurrence: None)
  Receive Date: 20100216
  Receipt Date: 20091210
  Transmission Date: 20100710
  Serious: No
  Sender: FDA-Public Use
  Company Number: US-ABBOTT-09P-163-0613537-00

PATIENT
  Sex: Female
  Weight: 112.59 kg

DRUGS (2)
  1. SIMCOR [Suspect]
     Indication: DRUG USE FOR UNKNOWN INDICATION
     Dosage: 500/20MG
     Route: 048
     Dates: start: 20091207
  2. SIMCOR [Suspect]
     Dosage: 1000/20MG
     Route: 048
     Dates: start: 20090901, end: 20091130

REACTIONS (1)
  - FLUSHING [None]
